FAERS Safety Report 7447089-3 (Version None)
Quarter: 2011Q2

REPORT INFORMATION
  Report Type: 
  Country: None (occurrence: None)
  Receive Date: 20110429
  Receipt Date: 20110428
  Transmission Date: 20111010
  Serious: Yes (Death)
  Sender: FDA-Public Use
  Company Number: JP-ROCHE-698588

PATIENT
  Sex: Female
  Weight: 2.7 kg

DRUGS (22)
  1. TOCILIZUMAB [Suspect]
     Route: 064
     Dates: start: 20081203, end: 20081203
  2. MEDROL [Concomitant]
     Dosage: IT IS AN ALTERNATE DAY REGIMN AS FOR AND 4MG/2MG/A DAY
     Dates: start: 20040101, end: 20080918
  3. MEDROL [Concomitant]
     Dates: end: 20080918
  4. MEDROL [Concomitant]
     Dates: start: 20081105, end: 20081202
  5. PYDOXAL [Concomitant]
     Dates: start: 20081008, end: 20090407
  6. DEPAS [Concomitant]
     Route: 064
     Dates: start: 20090204, end: 20090204
  7. TOCILIZUMAB [Suspect]
     Route: 064
     Dates: start: 20090107, end: 20090107
  8. TOCILIZUMAB [Suspect]
     Route: 064
     Dates: start: 20090311, end: 20090311
  9. MEDROL [Concomitant]
     Dates: start: 20081105, end: 20081202
  10. ASPARA-CA [Concomitant]
  11. TOCILIZUMAB [Suspect]
     Route: 064
     Dates: start: 20090204, end: 20090204
  12. MEDROL [Concomitant]
  13. ALFAROL [Concomitant]
     Dates: end: 20090203
  14. MEDROL [Concomitant]
     Dates: start: 20081203
  15. TAKEPRON [Concomitant]
     Dates: end: 20090203
  16. ULCERLMIN [Concomitant]
     Route: 064
     Dates: start: 20090204
  17. DEPAS [Concomitant]
     Route: 064
     Dates: start: 20090311, end: 20090311
  18. TOCILIZUMAB [Suspect]
     Indication: RHEUMATOID ARTHRITIS
     Route: 064
     Dates: start: 20081105, end: 20081105
  19. ISONIAZID [Suspect]
     Route: 064
     Dates: start: 20081008, end: 20090407
  20. MEDROL [Concomitant]
     Dates: start: 20080919, end: 20081104
  21. MEDROL [Concomitant]
  22. CALONAL [Concomitant]
     Route: 064
     Dates: start: 20090408

REACTIONS (1)
  - NEONATAL ASPHYXIA [None]
